FAERS Safety Report 7384499-7 (Version None)
Quarter: 2011Q1

REPORT INFORMATION
  Report Type: 
  Country: None (occurrence: None)
  Receive Date: 20110330
  Receipt Date: 20110324
  Transmission Date: 20110831
  Serious: Yes (Hospitalization)
  Sender: FDA-Public Use
  Company Number: FR-PFIZER INC-2011065277

PATIENT
  Age: 51 Year
  Sex: Male

DRUGS (31)
  1. TIENAM [Suspect]
     Dosage: 1 G, 3X/DAY
     Route: 042
     Dates: start: 20101105, end: 20101110
  2. MOPRAL [Suspect]
     Dosage: 20 MG DAILY
     Route: 048
     Dates: end: 20101115
  3. SEROPRAM [Suspect]
     Dosage: 20 MG, 1X/DAY
     Route: 048
     Dates: end: 20101114
  4. VANCOMYCIN [Concomitant]
     Dosage: UNK
     Dates: start: 20101026, end: 20101027
  5. GENTAMICIN [Concomitant]
     Dosage: 2 DF, 3X/DAY
     Dates: start: 20101025, end: 20101119
  6. EMEND [Concomitant]
     Dosage: 125 THEN 80 MG/DAY
     Dates: start: 20101026, end: 20101030
  7. SPASFON [Concomitant]
     Dosage: 2 TO 6 AMPULES DAILY
     Dates: start: 20101105, end: 20101112
  8. HEPARIN SODIUM [Concomitant]
     Dosage: 80 MG, 1X/DAY
     Route: 042
     Dates: start: 20101021, end: 20101119
  9. GELOX [Concomitant]
     Dosage: 1 DF, 3X/DAY
     Dates: start: 20101021, end: 20101114
  10. MYCOSTATIN [Concomitant]
     Dosage: UNK
     Route: 048
     Dates: start: 20101021, end: 20101114
  11. ACUPAN [Concomitant]
     Dosage: 2 TO 6 AMPULES/DAY
     Dates: start: 20101030, end: 20101030
  12. OXYNORM [Concomitant]
     Dosage: 12 MG/H
     Dates: start: 20101031, end: 20101114
  13. ZOVIRAX [Suspect]
     Indication: INFECTION PROPHYLAXIS
     Dosage: 250 MG, 3X/DAY
     Route: 042
     Dates: start: 20101021, end: 20101112
  14. CONTRAMAL [Concomitant]
     Dosage: UNK
     Dates: start: 20101105, end: 20101105
  15. TRIFLUCAN [Suspect]
     Indication: INFECTION PROPHYLAXIS
     Dosage: 200 MG, 1X/DAY
     Route: 048
     Dates: start: 20101008, end: 20101108
  16. TARGOCID [Suspect]
     Dosage: 400 MG 2X/DAY
     Route: 042
     Dates: start: 20101029, end: 20101113
  17. AMBISOME [Suspect]
     Dosage: 3 MG/KG, 1X/DAY
     Route: 042
     Dates: start: 20101109, end: 20101113
  18. ZOPHREN [Suspect]
     Indication: PREMEDICATION
     Dosage: UNK
     Route: 042
     Dates: start: 20100908, end: 20101101
  19. CHIBRO-CADRON [Concomitant]
     Dosage: UNK
     Dates: start: 20101012, end: 20101027
  20. PRIMPERAN TAB [Concomitant]
     Dosage: 1 DF, 3X/DAY
     Dates: start: 20101024, end: 20101118
  21. MOPRAL [Suspect]
     Dosage: 40 MG DAILY
     Route: 048
     Dates: start: 20101105, end: 20101115
  22. AMIKLIN [Concomitant]
     Dosage: UNK
     Dates: start: 20101105, end: 20101105
  23. TAZOCILLINE [Suspect]
     Dosage: 1 DF, 3X/DAY
     Route: 042
     Dates: start: 20101029, end: 20101105
  24. COLIMYCIN [Concomitant]
     Dosage: 2000000 IU, 2X/DAY
     Dates: start: 20101106, end: 20101115
  25. TARGOCID [Suspect]
     Dosage: 400 MG 1X/DAY
     Route: 042
  26. CIFLOX [Suspect]
     Dosage: 1 DF, 2X/DAY
     Route: 042
     Dates: start: 20101029, end: 20101110
  27. COLIMYCIN [Concomitant]
     Dosage: 2 DF, 3X/DAY
     Dates: start: 20101025, end: 20101119
  28. ACUPAN [Concomitant]
     Dosage: 2 TO 6 AMPULES/DAY
     Dates: start: 20101031, end: 20101031
  29. ACUPAN [Concomitant]
     Dosage: 2 TO 6 AMPULES/DAY
     Dates: start: 20101106, end: 20101106
  30. POLARAMINE [Concomitant]
     Dosage: UNK
     Dates: start: 20101024, end: 20101029
  31. MELPHALAN [Concomitant]
     Dosage: 140 MG
     Dates: start: 20101026, end: 20101026

REACTIONS (3)
  - CYTOLYTIC HEPATITIS [None]
  - CHOLESTASIS [None]
  - CONDITION AGGRAVATED [None]
